FAERS Safety Report 6297984-6 (Version None)
Quarter: 2009Q3

REPORT INFORMATION
  Report Type: 
  Country: None (occurrence: None)
  Receive Date: 20090805
  Receipt Date: 20090727
  Transmission Date: 20100115
  Serious: Yes (Hospitalization)
  Sender: FDA-Public Use
  Company Number: B0581039A

PATIENT
  Sex: Female
  Weight: 76 kg

DRUGS (3)
  1. ARIXTRA [Suspect]
     Indication: THROMBOSIS PROPHYLAXIS
     Dosage: 2.5MG PER DAY
     Route: 058
     Dates: start: 20090613, end: 20090616
  2. VOLTAREN [Concomitant]
     Indication: ANALGESIA
     Dosage: 50MG PER DAY
     Route: 054
     Dates: start: 20090612, end: 20090612
  3. VOLTAREN [Concomitant]
     Dosage: 50MG PER DAY
     Route: 054
     Dates: start: 20090614, end: 20090614

REACTIONS (6)
  - ABDOMINAL PAIN [None]
  - C-REACTIVE PROTEIN INCREASED [None]
  - HAEMATOMA INFECTION [None]
  - INTRA-ABDOMINAL HAEMATOMA [None]
  - PERITONITIS [None]
  - PYREXIA [None]
